FAERS Safety Report 8328798-0 (Version None)
Quarter: 2012Q2

REPORT INFORMATION
  Report Type: 
  Country: None (occurrence: None)
  Receive Date: 20120502
  Receipt Date: 20120427
  Transmission Date: 20120825
  Serious: Yes (Death, Hospitalization)
  Sender: FDA-Public Use
  Company Number: JP-ELI_LILLY_AND_COMPANY-JP201102002201

PATIENT
  Sex: Male
  Weight: 38 kg

DRUGS (3)
  1. GEMZAR [Suspect]
     Dosage: 700 MG/M2, UNK
     Route: 042
     Dates: start: 20110104, end: 20110118
  2. GRANISETRON [Concomitant]
     Indication: PROPHYLAXIS
     Dosage: 100 ML, UNK
     Route: 042
     Dates: start: 20101215, end: 20110118
  3. GEMZAR [Suspect]
     Indication: BILE DUCT CANCER
     Dosage: 1000 MG/M2, OTHER
     Route: 042
     Dates: start: 20101215, end: 20101221

REACTIONS (3)
  - INTERSTITIAL LUNG DISEASE [None]
  - PLATELET COUNT DECREASED [None]
  - MELAENA [None]
